FAERS Safety Report 11187164 (Version 1)
Quarter: 2015Q2

REPORT INFORMATION
  Report Type: Spontaneous
  Country: US (occurrence: US)
  Receive Date: 20150615
  Receipt Date: 20150615
  Transmission Date: 20150821
  Serious: No
  Sender: FDA-Public Use
  Company Number: US-JNJFOC-20150502012

PATIENT
  Sex: Female
  Weight: 76.66 kg

DRUGS (1)
  1. PANCREAZE [Suspect]
     Active Substance: PANCRELIPASE
     Indication: PANCREATITIS
     Route: 048
     Dates: start: 2014

REACTIONS (2)
  - Muscle spasms [Not Recovered/Not Resolved]
  - Heart rate decreased [Unknown]
